FAERS Safety Report 7380381-X (Version None)
Quarter: 2011Q1

REPORT INFORMATION
  Report Type: 
  Country: None (occurrence: None)
  Receive Date: 20110329
  Receipt Date: 20110321
  Transmission Date: 20110831
  Serious: Yes (Other)
  Sender: FDA-Public Use
  Company Number: FR-ASTRAZENECA-2011SE16646

PATIENT
  Age: 13463 Day
  Sex: Female

DRUGS (4)
  1. DIPRIVAN [Suspect]
     Indication: ANAESTHESIA
     Route: 042
     Dates: start: 20100610, end: 20100610
  2. NIMBEX [Suspect]
     Indication: ANAESTHESIA
     Dosage: ONCE/SINGLE ADMINISTRATION
     Route: 042
     Dates: start: 20100610, end: 20100610
  3. HYPNOVEL [Suspect]
     Indication: ANAESTHESIA
     Dosage: 1 MG/ML ONCE/SINGLE ADMINISTRATION
     Route: 042
     Dates: start: 20100610, end: 20100610
  4. SUFENTA PRESERVATIVE FREE [Suspect]
     Indication: ANAESTHESIA
     Route: 042
     Dates: start: 20100610, end: 20100610

REACTIONS (3)
  - TACHYCARDIA [None]
  - ANAPHYLACTIC REACTION [None]
  - RASH [None]
